FAERS Safety Report 6037813-9 (Version None)
Quarter: 2009Q1

REPORT INFORMATION
  Report Type: 
  Country: None (occurrence: None)
  Receive Date: 20090113
  Receipt Date: 20090106
  Transmission Date: 20090719
  Serious: Yes (Other)
  Sender: FDA-Public Use
  Company Number: 6047742

PATIENT
  Age: 69 Year
  Sex: Female

DRUGS (4)
  1. BISOPROLOL FUMARATE [Suspect]
     Indication: HYPERTENSION
     Dosage: ORAL; 1 YEAR APR
     Route: 048
  2. PRAVASTATIN SODIUM [Suspect]
     Indication: DRUG USE FOR UNKNOWN INDICATION
     Dosage: ORAL
     Route: 048
     Dates: start: 20080701, end: 20081201
  3. NONSTEROIDAL ANTI-INFLAMMATORY ANALGESIC THERAPY [Suspect]
     Indication: SPONDYLITIS
  4. CODOLIPRANE (CODEINE PHOSPHATE, PARACETAMOL) [Suspect]
     Indication: SPONDYLITIS

REACTIONS (2)
  - DEAFNESS NEUROSENSORY [None]
  - TINNITUS [None]
